FAERS Safety Report 6679050-0 (Version None)
Quarter: 2010Q2

REPORT INFORMATION
  Report Type: 
  Country: None (occurrence: None)
  Receive Date: 20100413
  Receipt Date: 20100401
  Transmission Date: 20101027
  Serious: Yes (Disabling)
  Sender: FDA-Public Use
  Company Number: PHHY2009IT50909

PATIENT
  Sex: Female

DRUGS (7)
  1. ZOMETA [Suspect]
     Indication: BREAST CANCER METASTATIC
     Dosage: 4 MG, QMO
     Route: 042
     Dates: start: 20070531, end: 20080723
  2. AROMASIN [Concomitant]
     Dosage: 25 MG, UNK
     Route: 048
  3. SEREUPIN [Concomitant]
  4. DELTACORTENE [Concomitant]
  5. SOLU-MEDROL [Concomitant]
  6. LANSOX [Concomitant]
  7. ZOFRAN [Concomitant]

REACTIONS (2)
  - GINGIVECTOMY [None]
  - OSTEONECROSIS [None]
